FAERS Safety Report 11602554 (Version 1)
Quarter: 2015Q4

REPORT INFORMATION
  Report Type: Spontaneous
  Country: US (occurrence: US)
  Receive Date: 20151006
  Receipt Date: 20151006
  Transmission Date: 20160304
  Serious: Yes (Other)
  Sender: FDA-Public Use
  Company Number: US-AMGEN-USASP2015073545

PATIENT
  Sex: Male

DRUGS (1)
  1. PROLIA [Suspect]
     Active Substance: DENOSUMAB
     Indication: PRODUCT USED FOR UNKNOWN INDICATION
     Dosage: UNK, UNK
     Route: 065
     Dates: start: 20150629

REACTIONS (5)
  - Angina pectoris [Unknown]
  - Flatulence [Unknown]
  - Arthralgia [Unknown]
  - Productive cough [Unknown]
  - Joint swelling [Unknown]

NARRATIVE: CASE EVENT DATE: 201506
